FAERS Safety Report 5731301-2 (Version None)
Quarter: 2008Q2

REPORT INFORMATION
  Report Type: 
  Country: None (occurrence: None)
  Receive Date: 20080505
  Receipt Date: 20080422
  Transmission Date: 20081010
  Serious: Yes (Other)
  Sender: FDA-Public Use
  Company Number: 2008010397

PATIENT
  Age: 38 Year
  Sex: Female

DRUGS (1)
  1. ROGAINE [Suspect]
     Dosage: TOPICAL
     Route: 061
     Dates: start: 20080403, end: 20080420

REACTIONS (2)
  - DERMATITIS CONTACT [None]
  - WOUND SECRETION [None]
